FAERS Safety Report 5395499-0 (Version None)
Quarter: 2007Q3

REPORT INFORMATION
  Report Type: 
  Country: None (occurrence: None)
  Receive Date: 20070724
  Receipt Date: 20070719
  Transmission Date: 20080115
  Serious: Yes (Other)
  Sender: FDA-Public Use
  Company Number: FR-BRISTOL-MYERS SQUIBB COMPANY-13853411

PATIENT
  Sex: Female
  Weight: 2 kg

DRUGS (6)
  1. ABILIFY [Suspect]
     Indication: SCHIZOPHRENIA
     Route: 064
     Dates: start: 20060624, end: 20061201
  2. SEROPLEX [Suspect]
     Indication: DYSTHYMIC DISORDER
     Route: 064
     Dates: start: 20051017, end: 20061201
  3. SEROPLEX [Suspect]
     Indication: PSYCHOTIC DISORDER
     Route: 064
     Dates: start: 20051017, end: 20061201
  4. DEPAMIDE [Suspect]
     Indication: PSYCHOTIC DISORDER
     Route: 064
     Dates: start: 20010101, end: 20061201
  5. SERESTA [Suspect]
     Indication: ANXIETY
     Route: 064
     Dates: start: 20061221, end: 20070620
  6. LARGACTIL [Suspect]
     Indication: PSYCHOTIC DISORDER
     Route: 064
     Dates: start: 20061221, end: 20070620

REACTIONS (2)
  - DRUG EXPOSURE DURING PREGNANCY [None]
  - PREMATURE BABY [None]
